FAERS Safety Report 8007745-5 (Version None)
Quarter: 2011Q4

REPORT INFORMATION
  Report Type: 
  Country: None (occurrence: None)
  Receive Date: 20111227
  Receipt Date: 20110607
  Transmission Date: 20120403
  Serious: No
  Sender: FDA-Public Use
  Company Number: US-ABBOTT-11P-163-0731346-00

PATIENT
  Sex: Male

DRUGS (2)
  1. ZINC [Concomitant]
     Indication: MINERAL SUPPLEMENTATION
     Route: 048
  2. LUPRON DEPOT [Suspect]
     Indication: PROSTATE CANCER
     Route: 030
     Dates: start: 20030613

REACTIONS (1)
  - TOOTH LOSS [None]
